FAERS Safety Report 6247400-5 (Version None)
Quarter: 2009Q2

REPORT INFORMATION
  Report Type: 
  Country: None (occurrence: None)
  Receive Date: 20090626
  Receipt Date: 20090616
  Transmission Date: 20091009
  Serious: Yes (Other)
  Sender: FDA-Public Use
  Company Number: FR-PFIZER INC-2009228702

PATIENT

DRUGS (1)
  1. TAHOR [Suspect]
     Dosage: 40 MG, 1X/DAY

REACTIONS (1)
  - SYSTEMIC LUPUS ERYTHEMATOSUS [None]
